FAERS Safety Report 18958102 (Version 1)
Quarter: 2021Q1

REPORT INFORMATION
  Report Type: Spontaneous
  Country: US (occurrence: US)
  Receive Date: 20210302
  Receipt Date: 20210302
  Transmission Date: 20210420
  Serious: No
  Sender: FDA-Public Use
  Company Number: None

PATIENT
  Age: 66 Year
  Sex: Male
  Weight: 105.61 kg

DRUGS (9)
  1. KEPPRA [Concomitant]
     Active Substance: LEVETIRACETAM
  2. ACETAMINOPHEN 325MG [Concomitant]
  3. SODIUM CHLORIDE 1GM [Concomitant]
  4. ZOFRAN [Concomitant]
     Active Substance: ONDANSETRON HYDROCHLORIDE
  5. PREDNISONE 4MG [Concomitant]
  6. BACTRIM DS 800?160MG [Concomitant]
  7. TEMOZOLOMIDE. [Suspect]
     Active Substance: TEMOZOLOMIDE
     Indication: BRAIN NEOPLASM MALIGNANT
     Route: 048
     Dates: start: 20200924
  8. DEXAMETHASONE 2MG [Concomitant]
  9. PANTOPRAZOLE 40MG [Concomitant]
     Active Substance: PANTOPRAZOLE SODIUM

REACTIONS (2)
  - Abdominal discomfort [None]
  - Vomiting [None]

NARRATIVE: CASE EVENT DATE: 20210301
